FAERS Safety Report 19163717 (Version 2)
Quarter: 2021Q2

REPORT INFORMATION
  Report Type: Spontaneous
  Country: US (occurrence: US)
  Receive Date: 20210421
  Receipt Date: 20210422
  Transmission Date: 20210717
  Serious: Yes (Other)
  Sender: FDA-Public Use
  Company Number: US-BIO PRODUCTS LABORATORY LTD-2109562

PATIENT
  Age: 30 Year
  Sex: Male

DRUGS (8)
  1. ANTI?THYMOCYTE GLOBULIN (RABBIT) NOS [Concomitant]
     Active Substance: LAPINE T-LYMPHOCYTE IMMUNE GLOBULIN
  2. CARFILZOMIB [Concomitant]
     Active Substance: CARFILZOMIB
  3. HUMAN NORMAL IMMUNOGLOBULIN [Suspect]
     Active Substance: HUMAN IMMUNOGLOBULIN G
     Indication: TRANSPLANT REJECTION
     Route: 042
  4. RITUXIMAB. [Concomitant]
     Active Substance: RITUXIMAB
  5. PREDNISONE. [Concomitant]
     Active Substance: PREDNISONE
  6. TACROLIMUS. [Concomitant]
     Active Substance: TACROLIMUS
  7. BELATACEPT [Concomitant]
     Active Substance: BELATACEPT
  8. MYCOPHENOLATE MOFETIL. [Concomitant]
     Active Substance: MYCOPHENOLATE MOFETIL

REACTIONS (4)
  - Brain abscess [Recovering/Resolving]
  - Drug ineffective for unapproved indication [Unknown]
  - Aspergillus infection [Recovering/Resolving]
  - Off label use [Unknown]
